FAERS Safety Report 4592576-9 (Version None)
Quarter: 2005Q1

REPORT INFORMATION
  Report Type: 
  Country: None (occurrence: None)
  Receive Date: 20050228
  Receipt Date: 20050218
  Transmission Date: 20050727
  Serious: Yes (Hospitalization)
  Sender: FDA-Public Use
  Company Number: 200510623FR

PATIENT
  Age: 60 Year
  Sex: Female
  Weight: 94 kg

DRUGS (9)
  1. LASIX [Suspect]
     Route: 048
  2. DIAFUSOR [Suspect]
     Route: 023
  3. PRAVASTATIN [Suspect]
     Route: 048
  4. ASPEGIC 325 [Suspect]
     Route: 048
     Dates: start: 20030701
  5. CORDARONE [Suspect]
     Route: 048
  6. AMLOR [Suspect]
     Route: 048
  7. OMEPRAZOLE [Concomitant]
  8. XANAX [Concomitant]
  9. ATARAX [Concomitant]

REACTIONS (4)
  - CYANOSIS [None]
  - EOSINOPHILIA [None]
  - RETINAL ARTERY EMBOLISM [None]
  - RETINAL VASCULAR DISORDER [None]
